FAERS Safety Report 5872545-9 (Version None)
Quarter: 2008Q3

REPORT INFORMATION
  Report Type: 
  Country: None (occurrence: None)
  Receive Date: 20080902
  Receipt Date: 20080820
  Transmission Date: 20090109
  Serious: Yes (Hospitalization)
  Sender: FDA-Public Use
  Company Number: WAES 0807USA04931

PATIENT
  Age: 37 Year
  Sex: Female

DRUGS (3)
  1. ZETIA [Suspect]
     Indication: HYPERCHOLESTEROLAEMIA
     Dosage: 10 MG/DAILY, PO, 20 MG, DAILY
     Route: 048
     Dates: start: 20080219, end: 20080714
  2. ZETIA [Suspect]
     Indication: HYPERCHOLESTEROLAEMIA
     Dosage: 10 MG/DAILY, PO, 20 MG, DAILY
     Route: 048
     Dates: start: 20080804
  3. ZETIA [Suspect]
     Indication: HYPERCHOLESTEROLAEMIA
     Dosage: 10 MG/DAILY, PO, 20 MG, DAILY
     Route: 048
     Dates: start: 20080804

REACTIONS (3)
  - ERYTHEMA MULTIFORME [None]
  - GENERALISED OEDEMA [None]
  - PAIN [None]
